FAERS Safety Report 5813359-5 (Version None)
Quarter: 2008Q3

REPORT INFORMATION
  Report Type: 
  Country: None (occurrence: None)
  Receive Date: 20080714
  Receipt Date: 20080702
  Transmission Date: 20090109
  Serious: Yes (Other)
  Sender: FDA-Public Use
  Company Number: 2008AL007879

PATIENT
  Sex: Female

DRUGS (1)
  1. DIGOXIN [Suspect]
     Indication: MYOCARDIAL INFARCTION

REACTIONS (11)
  - ANHEDONIA [None]
  - ANXIETY [None]
  - CHROMATOPSIA [None]
  - DIZZINESS [None]
  - HALO VISION [None]
  - INJURY [None]
  - NAUSEA [None]
  - PAIN [None]
  - PALPITATIONS [None]
  - SYNCOPE [None]
  - TRANSIENT ISCHAEMIC ATTACK [None]
